FAERS Safety Report 15015053 (Version 2)
Quarter: 2018Q3

REPORT INFORMATION
  Report Type: Spontaneous
  Country: US (occurrence: US)
  Receive Date: 20180615
  Receipt Date: 20180908
  Transmission Date: 20181010
  Serious: Yes (Other)
  Sender: FDA-Public Use
  Company Number: US-BRISTOL-MYERS SQUIBB COMPANY-BMS-2018-053535

PATIENT
  Age: 61 Year
  Sex: Female
  Weight: 79.3 kg

DRUGS (1)
  1. OPDIVO [Suspect]
     Active Substance: NIVOLUMAB
     Indication: BLADDER CANCER
     Dosage: UNK UNK, Q2WK
     Route: 042
     Dates: start: 2016

REACTIONS (5)
  - Skin exfoliation [Unknown]
  - Dysgeusia [Unknown]
  - Abdominal pain upper [Unknown]
  - Flatulence [Unknown]
  - Diarrhoea [Recovered/Resolved]

NARRATIVE: CASE EVENT DATE: 201709
